FAERS Safety Report 4395805-X (Version None)
Quarter: 2004Q3

REPORT INFORMATION
  Report Type: 
  Country: None (occurrence: None)
  Receive Date: 20040713
  Receipt Date: 20040625
  Transmission Date: 20050211
  Serious: Yes (Hospitalization)
  Sender: FDA-Public Use
  Company Number: JP-ROCHE-372464

PATIENT
  Age: 17 Year
  Sex: Male

DRUGS (2)
  1. TAMIFLU [Suspect]
     Route: 048
     Dates: start: 20040202, end: 20040202
  2. ACETAMINOPHEN [Concomitant]
     Route: 048
     Dates: start: 20040202, end: 20040202

REACTIONS (2)
  - HALLUCINATION [None]
  - LOWER LIMB FRACTURE [None]
